FAERS Safety Report 6387793-1 (Version None)
Quarter: 2009Q4

REPORT INFORMATION
  Report Type: 
  Country: None (occurrence: None)
  Receive Date: 20091005
  Receipt Date: 20090929
  Transmission Date: 20100525
  Serious: Yes (Life-Threatening)
  Sender: FDA-Public Use
  Company Number: US-BRISTOL-MYERS SQUIBB COMPANY-14801849

PATIENT
  Age: 53 Year
  Sex: Female

DRUGS (2)
  1. BARACLUDE [Suspect]
  2. HEPATITIS B IMMUNE GLOBULIN (HUMAN) [Concomitant]

REACTIONS (1)
  - LIVER TRANSPLANT REJECTION [None]
